FAERS Safety Report 8417651-X (Version None)
Quarter: 2012Q2

REPORT INFORMATION
  Report Type: 
  Country: None (occurrence: None)
  Receive Date: 20120606
  Receipt Date: 20120529
  Transmission Date: 20120825
  Serious: Yes (Other)
  Sender: FDA-Public Use
  Company Number: US-AMGEN-USASP2012033720

PATIENT
  Age: 68 Year
  Sex: Male

DRUGS (4)
  1. IMMUNOSUPPRESSANTS [Concomitant]
  2. ANTIBIOTICS [Concomitant]
  3. EPOGEN [Suspect]
     Indication: RENAL FAILURE CHRONIC
     Dosage: 29700 IU, 3 TIMES/WK
     Dates: start: 20120301
  4. EPOGEN [Suspect]
     Dosage: UNK
     Dates: start: 20100101

REACTIONS (2)
  - HAEMOGLOBIN DECREASED [None]
  - THERAPEUTIC RESPONSE DECREASED [None]
